FAERS Safety Report 21734290 (Version 2)
Quarter: 2023Q2

REPORT INFORMATION
  Report Type: Report from Study
  Country: CA (occurrence: CA)
  Receive Date: 20221215
  Receipt Date: 20230620
  Transmission Date: 20230721
  Serious: Yes (Other)
  Sender: FDA-Public Use
  Company Number: CA-OTSUKA-2022_051744

PATIENT
  Age: 21 Year
  Sex: Female

DRUGS (2)
  1. TOLVAPTAN [Suspect]
     Active Substance: TOLVAPTAN
     Indication: Product used for unknown indication
     Dosage: 45 MG, QD (IN THE MORNING (AM))
     Route: 048
     Dates: start: 20220708
  2. TOLVAPTAN [Suspect]
     Active Substance: TOLVAPTAN
     Dosage: 15 MG, QD (IN THE EVENING, IN PM)
     Route: 048
     Dates: start: 20220708

REACTIONS (12)
  - Cyst rupture [Unknown]
  - Haemorrhagic cyst [Unknown]
  - Abdominal pain lower [Recovered/Resolved]
  - Blood urine present [Recovered/Resolved]
  - Abdominal distension [Recovered/Resolved]
  - Protein urine present [Unknown]
  - Urine leukocyte esterase positive [Unknown]
  - Lymphocyte count decreased [Unknown]
  - Specific gravity urine abnormal [Unknown]
  - Tenderness [Unknown]
  - Abdominal pain upper [Unknown]
  - Intentional dose omission [Unknown]

NARRATIVE: CASE EVENT DATE: 20221123
